FAERS Safety Report 5772306-5 (Version None)
Quarter: 2008Q2

REPORT INFORMATION
  Report Type: 
  Country: None (occurrence: None)
  Receive Date: 20080610
  Receipt Date: 20080602
  Transmission Date: 20081010
  Serious: Yes (Hospitalization)
  Sender: FDA-Public Use
  Company Number: SPV1-2008-00951

PATIENT
  Age: 13 Year
  Sex: Male

DRUGS (4)
  1. ELAPRASE [Suspect]
     Indication: MUCOPOLYSACCHARIDOSIS II
     Dosage: 24 MG, 1X/WEEK, IV DRIP
     Route: 041
     Dates: start: 20061016
  2. PREDNISONE TAB [Concomitant]
  3. CETIRIZINE (CETIRZINE) [Concomitant]
  4. ADRENERGICS AND OTHER DRUGS FOR OBST. AIRW.SDIS. [Concomitant]

REACTIONS (2)
  - CROUP INFECTIOUS [None]
  - RESPIRATORY TRACT INFECTION [None]
